FAERS Safety Report 25328152 (Version 1)
Quarter: 2025Q2

REPORT INFORMATION
  Report Type: Spontaneous
  Country: JP (occurrence: JP)
  Receive Date: 20250518
  Receipt Date: 20250518
  Transmission Date: 20250717
  Serious: Yes (Other)
  Sender: EISAI
  Company Number: JP-Eisai-202501761_LEN-HCC_P_1

PATIENT
  Age: 79 Year
  Sex: Male

DRUGS (7)
  1. LENVATINIB [Suspect]
     Active Substance: LENVATINIB
     Indication: Hepatocellular carcinoma
  2. LENVATINIB [Suspect]
     Active Substance: LENVATINIB
  3. LENVATINIB [Suspect]
     Active Substance: LENVATINIB
     Dosage: ON A 2-DAY-ON AND 1-DAY-OFF SCHEDULE
  4. LENVATINIB [Suspect]
     Active Substance: LENVATINIB
  5. LENVATINIB [Suspect]
     Active Substance: LENVATINIB
  6. PREDNISOLONE [Concomitant]
     Active Substance: PREDNISOLONE
     Indication: Product used for unknown indication
  7. PREDNISOLONE [Concomitant]
     Active Substance: PREDNISOLONE

REACTIONS (3)
  - Adrenal insufficiency [Unknown]
  - Liver disorder [Recovering/Resolving]
  - Hypothyroidism [Unknown]
